FAERS Safety Report 25614107 (Version 3)
Quarter: 2025Q3

REPORT INFORMATION
  Report Type: Report from Study
  Country: US (occurrence: US)
  Receive Date: 20250728
  Receipt Date: 20250915
  Transmission Date: 20251020
  Serious: No
  Sender: MALLINCKRODT
  Company Number: US-MALLINCKRODT-MNK202504263

PATIENT
  Age: 54 Year
  Sex: Female
  Weight: 213 kg

DRUGS (1)
  1. CORTICOTROPIN [Suspect]
     Active Substance: CORTICOTROPIN
     Indication: Rheumatoid arthritis
     Route: 058
     Dates: start: 20250701

REACTIONS (8)
  - Feeling abnormal [Unknown]
  - Joint swelling [Unknown]
  - Pain [Recovering/Resolving]
  - Hypertension [Recovering/Resolving]
  - Peripheral swelling [Unknown]
  - Injection site bruising [Unknown]
  - Injection site pain [Unknown]
  - Affective disorder [Unknown]

NARRATIVE: CASE EVENT DATE: 20250101
